FAERS Safety Report 6059041-3 (Version None)
Quarter: 2009Q1

REPORT INFORMATION
  Report Type: 
  Country: None (occurrence: None)
  Receive Date: 20090130
  Receipt Date: 20090119
  Transmission Date: 20090719
  Serious: Yes (Hospitalization)
  Sender: FDA-Public Use
  Company Number: B0554768A

PATIENT
  Age: 91 Year
  Sex: Male

DRUGS (8)
  1. AUGMENTIN '125' [Suspect]
     Indication: LOCALISED INFECTION
     Route: 048
     Dates: start: 20080829, end: 20080830
  2. PROSCAR [Concomitant]
  3. FUROSEMIDE [Concomitant]
  4. XATRAL [Concomitant]
  5. LIPANTHYL [Concomitant]
  6. STABLON [Concomitant]
  7. KARDEGIC [Concomitant]
  8. DEDROGYL [Concomitant]

REACTIONS (4)
  - CLOSTRIDIUM DIFFICILE COLITIS [None]
  - DIARRHOEA [None]
  - HYPOKALAEMIA [None]
  - VOMITING [None]
